FAERS Safety Report 14211342 (Version 1)
Quarter: 2017Q4

REPORT INFORMATION
  Report Type: Spontaneous
  Country: NZ (occurrence: NZ)
  Receive Date: 20171121
  Receipt Date: 20171121
  Transmission Date: 20180321
  Serious: Yes (Other)
  Sender: FDA-Public Use
  Company Number: NZ-ELI_LILLY_AND_COMPANY-NZ201711006015

PATIENT
  Sex: Male

DRUGS (1)
  1. ZYPREXA RELPREVV [Suspect]
     Active Substance: OLANZAPINE PAMOATE
     Indication: PRODUCT USED FOR UNKNOWN INDICATION
     Dosage: 300 MG, UNKNOWN
     Route: 030

REACTIONS (9)
  - Psychotic disorder [Unknown]
  - Hallucination, auditory [Unknown]
  - Post-injection delirium sedation syndrome [Unknown]
  - Balance disorder [Unknown]
  - Dysarthria [Unknown]
  - Heart rate increased [Recovered/Resolved]
  - Irritability [Unknown]
  - Sedation complication [Recovering/Resolving]
  - Fall [Unknown]

NARRATIVE: CASE EVENT DATE: 20171010
